FAERS Safety Report 4956096-1 (Version None)
Quarter: 2006Q1

REPORT INFORMATION
  Report Type: 
  Country: None (occurrence: None)
  Receive Date: 20060328
  Receipt Date: 20051123
  Transmission Date: 20060701
  Serious: Yes (Hospitalization, Disabling)
  Sender: FDA-Public Use
  Company Number: US-MERCK-0511USA04408

PATIENT
  Age: 77 Year
  Sex: Female
  Weight: 86 kg

DRUGS (12)
  1. VIOXX [Suspect]
     Indication: ARTHRITIS
     Route: 048
     Dates: start: 20010701, end: 20020101
  2. AMBIEN [Concomitant]
     Route: 065
  3. ASPIRIN [Concomitant]
     Route: 065
  4. COMBIVENT [Concomitant]
     Route: 065
  5. COLACE [Concomitant]
     Route: 065
  6. PEPCID [Concomitant]
     Route: 065
  7. FLOMAX (MORNIFLUMATE) [Concomitant]
     Route: 065
  8. NORVASC [Concomitant]
     Route: 065
  9. PREMARIN [Concomitant]
     Route: 065
  10. PRINIVIL [Concomitant]
     Route: 048
  11. TIMOLOL GFS [Concomitant]
     Route: 047
  12. TOPROL-XL [Concomitant]
     Route: 065

REACTIONS (6)
  - ATRIAL FLUTTER [None]
  - CEREBROVASCULAR ACCIDENT [None]
  - CONVULSION [None]
  - DEAFNESS [None]
  - GASTROINTESTINAL DISORDER [None]
  - ROAD TRAFFIC ACCIDENT [None]
